FAERS Safety Report 24961263 (Version 1)
Quarter: 2025Q1

REPORT INFORMATION
  Report Type: Report from Study
  Country: IN (occurrence: IN)
  Receive Date: 20250212
  Receipt Date: 20250212
  Transmission Date: 20250408
  Serious: Yes (Other)
  Sender: ROCHE
  Company Number: IN-ROCHE-10000198236

PATIENT
  Age: 65 Year
  Sex: Male

DRUGS (2)
  1. AVASTIN [Suspect]
     Active Substance: BEVACIZUMAB
     Indication: Hepatocellular carcinoma
     Route: 042
     Dates: start: 20231019
  2. TECENTRIQ [Suspect]
     Active Substance: ATEZOLIZUMAB
     Indication: Hepatocellular carcinoma
     Route: 042
     Dates: start: 20231019

REACTIONS (40)
  - White blood cell count decreased [Unknown]
  - Hypoalbuminaemia [Unknown]
  - Aspartate aminotransferase increased [Unknown]
  - Blood alkaline phosphatase increased [Unknown]
  - Blood creatinine increased [Unknown]
  - Blood sodium decreased [Unknown]
  - Blood chloride decreased [Unknown]
  - Blood iron decreased [Unknown]
  - Vitamin B12 increased [Unknown]
  - Hepatitis B surface antigen positive [Unknown]
  - Alpha 1 foetoprotein increased [Unknown]
  - Tumour thrombosis [Unknown]
  - Renal disorder [Unknown]
  - Cough [Unknown]
  - Neck pain [Unknown]
  - Spinal osteoarthritis [Unknown]
  - Vertebral foraminal stenosis [Unknown]
  - Pancytopenia [Unknown]
  - Abdominal distension [Unknown]
  - Aspartate aminotransferase increased [Unknown]
  - Sputum abnormal [Unknown]
  - Hepatitis B surface antigen positive [Unknown]
  - Liver disorder [Unknown]
  - Peritoneal fluid analysis abnormal [Unknown]
  - Protein total decreased [Unknown]
  - Lower respiratory tract infection [Unknown]
  - Blood pressure diastolic decreased [Unknown]
  - Blood pressure systolic increased [Unknown]
  - Acute kidney injury [Recovering/Resolving]
  - Anaemia [Recovered/Resolved]
  - Portal hypertension [Unknown]
  - Ascites [Unknown]
  - Heart rate increased [Unknown]
  - Haemoglobin decreased [Unknown]
  - Splenomegaly [Unknown]
  - Portal hypertensive gastropathy [Unknown]
  - Portal vein dilatation [Unknown]
  - Portal vein thrombosis [Unknown]
  - Pain [Unknown]
  - Blood creatinine increased [Unknown]

NARRATIVE: CASE EVENT DATE: 20241020
